FAERS Safety Report 8061534-4 (Version None)
Quarter: 2012Q1

REPORT INFORMATION
  Report Type: 
  Country: None (occurrence: None)
  Receive Date: 20120120
  Receipt Date: 20120111
  Transmission Date: 20120608
  Serious: Yes (Other)
  Sender: FDA-Public Use
  Company Number: US-ASTRAZENECA-2012SE02538

PATIENT
  Sex: Male

DRUGS (4)
  1. ASPIRIN [Concomitant]
     Route: 048
     Dates: start: 20120101, end: 20120101
  2. BRILINTA [Suspect]
     Indication: ACUTE CORONARY SYNDROME
     Dates: start: 20120106, end: 20120106
  3. LISINOPRIL [Concomitant]
     Route: 048
     Dates: start: 20120101, end: 20120101
  4. CRESTOR [Concomitant]
     Route: 048
     Dates: start: 20120101, end: 20120101

REACTIONS (1)
  - DEVICE OCCLUSION [None]
